FAERS Safety Report 7183505-2 (Version None)
Quarter: 2010Q4

REPORT INFORMATION
  Report Type: 
  Country: None (occurrence: None)
  Receive Date: 20101222
  Receipt Date: 20101215
  Transmission Date: 20110411
  Serious: Yes (Life-Threatening, Hospitalization)
  Sender: FDA-Public Use
  Company Number: US-US-EMD SERONO, INC.-7032444

PATIENT
  Sex: Female

DRUGS (4)
  1. REBIF [Suspect]
     Indication: PRODUCT USED FOR UNKNOWN INDICATION
     Dates: start: 20101001, end: 20100101
  2. REBIF [Suspect]
     Route: 058
     Dates: start: 20101201
  3. TEGRETOL [Concomitant]
     Indication: TRIGEMINAL NEURALGIA
  4. KEPPRA [Concomitant]
     Indication: CONVULSION
     Dates: start: 20101001

REACTIONS (6)
  - ABSCESS RUPTURE [None]
  - GALLBLADDER DISORDER [None]
  - INJECTION SITE ERYTHEMA [None]
  - INTESTINAL PERFORATION [None]
  - OVARIAN CYST [None]
  - ULCER HAEMORRHAGE [None]
